FAERS Safety Report 9707813 (Version 1)
Quarter: 2013Q4

REPORT INFORMATION
  Report Type: Spontaneous
  Country: US (occurrence: None)
  Receive Date: 20131122
  Receipt Date: 20131122
  Transmission Date: 20140711
  Serious: Yes (Life-Threatening, Hospitalization)
  Sender: FDA-Public Use
  Company Number: None

PATIENT
  Age: 55 Year
  Sex: Male

DRUGS (1)
  1. ACTEMRA [Suspect]
     Dosage: INFUSE 8 MG/KG (778 MG) INTRAVENOUSLY EVERY MONTH
     Route: 042

REACTIONS (1)
  - Myocardial infarction [None]
